FAERS Safety Report 11363823 (Version 1)
Quarter: 2015Q3

REPORT INFORMATION
  Report Type: Spontaneous
  Country: US (occurrence: None)
  Receive Date: 20150810
  Receipt Date: 20150810
  Transmission Date: 20151125
  Serious: Yes (Hospitalization)
  Sender: FDA-Public Use
  Company Number: None

PATIENT
  Age: 63 Year
  Sex: Male

DRUGS (1)
  1. NEORAL [Suspect]
     Active Substance: CYCLOSPORINE
     Indication: TRANSPLANT
     Route: 048
     Dates: start: 20080101, end: 20150806

REACTIONS (1)
  - Infection [None]

NARRATIVE: CASE EVENT DATE: 20150801
